FAERS Safety Report 13188267 (Version 1)
Quarter: 2017Q1

REPORT INFORMATION
  Report Type: Spontaneous
  Country: US (occurrence: US)
  Receive Date: 20170206
  Receipt Date: 20170206
  Transmission Date: 20170428
  Serious: No
  Sender: FDA-Public Use
  Company Number: US-AMGEN-USASP2017015205

PATIENT
  Age: 59 Year
  Sex: Male

DRUGS (2)
  1. ENBREL [Suspect]
     Active Substance: ETANERCEPT
     Indication: RHEUMATOID ARTHRITIS
     Dosage: 50 MG, QWK
     Route: 065
     Dates: start: 201610
  2. ENBREL [Suspect]
     Active Substance: ETANERCEPT
     Indication: OSTEOARTHRITIS

REACTIONS (8)
  - Anxiety [Unknown]
  - Injection site pain [Unknown]
  - Feeling abnormal [Unknown]
  - Reading disorder [Unknown]
  - Wrong technique in product usage process [Unknown]
  - Fear of injection [Unknown]
  - Off label use [Unknown]
  - Drug dose omission [Unknown]

NARRATIVE: CASE EVENT DATE: 2016
